FAERS Safety Report 18205611 (Version 1)
Quarter: 2020Q3

REPORT INFORMATION
  Report Type: Report from Study
  Country: None (occurrence: DE)
  Receive Date: 20200827
  Receipt Date: 20200827
  Transmission Date: 20201103
  Serious: Yes (Hospitalization)
  Sender: FDA-Public Use
  Company Number: DE-ABBVIE-20P-062-3353171-00

PATIENT
  Age: 78 Year
  Sex: Female

DRUGS (23)
  1. ALVOCIDIB [Suspect]
     Active Substance: ALVOCIDIB
     Indication: ACUTE MYELOID LEUKAEMIA
     Dosage: DAY 1?DAY 3
     Route: 042
     Dates: start: 20200121, end: 20200121
  2. AMOXICLAV [Concomitant]
     Active Substance: AMOXICILLIN\CLAVULANATE POTASSIUM
     Indication: INFECTION PROPHYLAXIS
     Route: 048
     Dates: start: 201703
  3. VENETOCLAX. [Suspect]
     Active Substance: VENETOCLAX
     Route: 048
     Dates: start: 20200123, end: 20200123
  4. VENETOCLAX. [Suspect]
     Active Substance: VENETOCLAX
     Route: 048
     Dates: start: 20200323, end: 20200409
  5. ALVOCIDIB [Suspect]
     Active Substance: ALVOCIDIB
     Dosage: DAY 1?DAY 3
     Route: 042
     Dates: start: 20200122, end: 20200122
  6. VENETOCLAX. [Suspect]
     Active Substance: VENETOCLAX
     Route: 048
     Dates: start: 20200124, end: 20200320
  7. ALVOCIDIB [Suspect]
     Active Substance: ALVOCIDIB
     Dosage: DAY 1?DAY 3
     Route: 042
     Dates: start: 20200415
  8. COTRIM FORTE [Concomitant]
     Active Substance: SULFAMETHOXAZOLE\TRIMETHOPRIM
     Indication: INFECTION PROPHYLAXIS
     Dosage: BID AT THE WEEKEND
     Route: 048
     Dates: start: 201703
  9. COTRIM FORTE [Concomitant]
     Active Substance: SULFAMETHOXAZOLE\TRIMETHOPRIM
     Route: 042
     Dates: start: 20200125, end: 20200126
  10. TAVEGIL [Concomitant]
     Active Substance: CLEMASTINE FUMARATE
     Indication: INSOMNIA
     Route: 048
     Dates: start: 201908
  11. METAMIZOL [Concomitant]
     Active Substance: METAMIZOLE SODIUM
     Route: 042
     Dates: start: 20200406, end: 20200408
  12. L?THYROXIN [Concomitant]
     Active Substance: LEVOTHYROXINE SODIUM
     Indication: HYPOTHYROIDISM
     Route: 048
     Dates: start: 20200103
  13. ALVOCIDIB [Suspect]
     Active Substance: ALVOCIDIB
     Dosage: DAY 1?DAY 3
     Route: 042
     Dates: start: 20200123, end: 20200319
  14. MIRTAZAPIN [Concomitant]
     Active Substance: MIRTAZAPINE
     Indication: DEPRESSION
     Route: 048
     Dates: start: 20200320
  15. METAMIZOL [Concomitant]
     Active Substance: METAMIZOLE SODIUM
     Indication: BACK PAIN
     Route: 048
     Dates: start: 20200324, end: 20200409
  16. VENETOCLAX. [Suspect]
     Active Substance: VENETOCLAX
     Route: 048
     Dates: start: 20200122, end: 20200122
  17. ALLOPURINOL. [Concomitant]
     Active Substance: ALLOPURINOL
     Indication: PROPHYLAXIS
     Route: 048
     Dates: start: 20200120, end: 20200125
  18. NORMAL SALINE SOLUTION (0.9% SODIUM CHLORIDE) [Concomitant]
     Indication: PROPHYLAXIS
     Route: 042
     Dates: start: 20200120, end: 20200126
  19. FENTANYL. [Concomitant]
     Active Substance: FENTANYL
     Indication: BACK PAIN
     Route: 062
     Dates: start: 20200319
  20. VENETOCLAX. [Suspect]
     Active Substance: VENETOCLAX
     Indication: ACUTE MYELOID LEUKAEMIA
     Route: 048
     Dates: start: 20200121, end: 20200121
  21. FOSRENOL [Concomitant]
     Active Substance: LANTHANUM CARBONATE
     Indication: PROPHYLAXIS
     Route: 048
     Dates: start: 20200120, end: 20200125
  22. METOCLOPRAMID [Concomitant]
     Active Substance: METOCLOPRAMIDE
     Indication: NAUSEA
     Route: 048
     Dates: start: 20200324, end: 20200410
  23. VENETOCLAX. [Suspect]
     Active Substance: VENETOCLAX
     Route: 048
     Dates: start: 20200411

REACTIONS (2)
  - Nausea [Recovered/Resolved]
  - Vomiting [Recovered/Resolved]

NARRATIVE: CASE EVENT DATE: 20200406
